FAERS Safety Report 10900192 (Version 1)
Quarter: 2015Q1

REPORT INFORMATION
  Report Type: Spontaneous
  Country: GB (occurrence: GB)
  Receive Date: 20150310
  Receipt Date: 20150310
  Transmission Date: 20150721
  Serious: Yes (Other)
  Sender: FDA-Public Use
  Company Number: GB-AUROBINDO-AUR-APL-2015-02095

PATIENT
  Sex: Female

DRUGS (1)
  1. MIRTAZAPINE 45MG [Suspect]
     Active Substance: MIRTAZAPINE
     Indication: MENTAL DISORDER
     Dosage: 45 MG, UNK
     Route: 063

REACTIONS (2)
  - Exposure during breast feeding [Unknown]
  - Drug withdrawal syndrome neonatal [Unknown]
